FAERS Safety Report 20179687 (Version 1)
Quarter: 2021Q4

REPORT INFORMATION
  Report Type: Spontaneous
  Country: US (occurrence: US)
  Receive Date: 20211214
  Receipt Date: 20211214
  Transmission Date: 20220303
  Serious: Yes (Life-Threatening, Other)
  Sender: FDA-Public Use
  Company Number: US-MLMSERVICE-20211130-3207191-1

PATIENT
  Age: 82 Year
  Sex: Female

DRUGS (2)
  1. APIXABAN [Suspect]
     Active Substance: APIXABAN
     Indication: Atrial fibrillation
  2. CLOPIDOGREL [Suspect]
     Active Substance: CLOPIDOGREL BISULFATE
     Indication: Transient ischaemic attack

REACTIONS (5)
  - Haemangioma of spleen [Unknown]
  - Haemoperitoneum [Unknown]
  - Hypotension [Unknown]
  - Haemoglobin decreased [Unknown]
  - Splenic rupture [Unknown]
